FAERS Safety Report 21314575 (Version 1)
Quarter: 2022Q3

REPORT INFORMATION
  Report Type: Spontaneous
  Country: US (occurrence: US)
  Receive Date: 20220909
  Receipt Date: 20220909
  Transmission Date: 20221027
  Serious: No
  Sender: FDA-Public Use
  Company Number: US-PFIZER INC-202200757267

PATIENT
  Age: 52 Year
  Sex: Female

DRUGS (2)
  1. ZIRABEV [Suspect]
     Active Substance: BEVACIZUMAB-BVZR
     Dosage: 300 MG 14 DAYS QTY: 6 REFILLS 15
  2. ZIRABEV [Suspect]
     Active Substance: BEVACIZUMAB-BVZR
     Dosage: 100 MG

REACTIONS (2)
  - Off label use [Unknown]
  - Liver disorder [Unknown]
